FAERS Safety Report 6300503-9 (Version None)
Quarter: 2009Q3

REPORT INFORMATION
  Report Type: 
  Country: None (occurrence: None)
  Receive Date: 20090806
  Receipt Date: 20081203
  Transmission Date: 20100115
  Serious: No
  Sender: FDA-Public Use
  Company Number: US-ABBOTT-08P-163-0491045-00

PATIENT
  Sex: Male
  Weight: 66.738 kg

DRUGS (9)
  1. DEPAKOTE ER [Suspect]
     Indication: ATTENTION DEFICIT/HYPERACTIVITY DISORDER
     Route: 048
     Dates: start: 20070101, end: 20080305
  2. DEPAKOTE ER [Suspect]
     Indication: BIPOLAR DISORDER
  3. DEPAKOTE ER [Suspect]
     Indication: INTERMITTENT EXPLOSIVE DISORDER
  4. LITHIUM CARBONATE [Concomitant]
     Indication: OPPOSITIONAL DEFIANT DISORDER
  5. LITHIUM CARBONATE [Concomitant]
     Indication: MENTAL IMPAIRMENT
  6. LITHIUM CARBONATE [Concomitant]
     Indication: BIPOLAR DISORDER
  7. ZYPREXA [Concomitant]
     Indication: OPPOSITIONAL DEFIANT DISORDER
     Route: 048
  8. ZYPREXA [Concomitant]
     Indication: MENTAL IMPAIRMENT
  9. ZYPREXA [Concomitant]
     Indication: BIPOLAR DISORDER

REACTIONS (4)
  - HAEMATOCRIT DECREASED [None]
  - HAEMOGLOBIN DECREASED [None]
  - PLATELET COUNT DECREASED [None]
  - WHITE BLOOD CELL COUNT DECREASED [None]
